FAERS Safety Report 8370075-6 (Version None)
Quarter: 2012Q1

REPORT INFORMATION
  Report Type: 
  Country: None (occurrence: None)
  Receive Date: 20120323
  Receipt Date: 20110613
  Transmission Date: 20120608
  Serious: Yes (Other)
  Sender: FDA-Public Use
  Company Number: 163-21880-11061928

PATIENT
  Age: 65 Year
  Sex: Male

DRUGS (2)
  1. DEXAMETHASONE [Concomitant]
  2. REVLIMID [Suspect]
     Indication: MULTIPLE MYELOMA
     Dosage: PO
     Route: 048
     Dates: start: 20110501, end: 20110601

REACTIONS (2)
  - PANCYTOPENIA [None]
  - ADVERSE DRUG REACTION [None]
